FAERS Safety Report 16106366 (Version 1)
Quarter: 2019Q2

REPORT INFORMATION
  Report Type: Spontaneous
  Country: US (occurrence: US)
  Receive Date: 20190321
  Receipt Date: 20190321
  Transmission Date: 20190711
  Serious: Yes (Hospitalization)
  Sender: FDA-Public Use
  Company Number: None

PATIENT
  Age: 67 Year
  Sex: Female
  Weight: 62.14 kg

DRUGS (2)
  1. PREDNISONE. [Suspect]
     Active Substance: PREDNISONE
     Indication: LYMPHOCYTIC LEUKAEMIA
     Route: 048
  2. LEUKERAN [Suspect]
     Active Substance: CHLORAMBUCIL
     Indication: LYMPHOCYTIC LEUKAEMIA
     Dosage: ?          OTHER FREQUENCY:EVERY 6 HOURS;?
     Route: 048
     Dates: start: 20190222

REACTIONS (1)
  - Hospitalisation [None]
